FAERS Safety Report 7354718-1 (Version None)
Quarter: 2011Q1

REPORT INFORMATION
  Report Type: 
  Country: None (occurrence: None)
  Receive Date: 20110316
  Receipt Date: 20110303
  Transmission Date: 20110831
  Serious: Yes (Hospitalization)
  Sender: FDA-Public Use
  Company Number: FR-CELGENEUS-056-50794-11031021

PATIENT
  Sex: Female

DRUGS (7)
  1. VALPROATE SODIUM [Suspect]
     Dosage: 3000 MILLIGRAM
     Route: 048
     Dates: start: 20080206, end: 20080209
  2. ALL TRANS RETINOIC ACID [Concomitant]
     Route: 065
  3. VIDAZA [Suspect]
     Dosage: 130 MILLIGRAM
     Route: 058
     Dates: start: 20080206, end: 20080212
  4. TRETINOIN [Suspect]
     Dosage: 80 MILLIGRAM
     Route: 048
     Dates: start: 20080206, end: 20080212
  5. ARANESP [Suspect]
     Route: 048
     Dates: start: 20071221, end: 20080601
  6. ARANESP [Suspect]
     Route: 048
     Dates: start: 20071123
  7. ANASTROZOLE [Suspect]
     Dosage: 1 MILLIGRAM
     Route: 048
     Dates: start: 20030101

REACTIONS (2)
  - PULMONARY EMBOLISM [None]
  - PHLEBITIS [None]
